FAERS Safety Report 9781792 (Version 2)
Quarter: 2014Q2

REPORT INFORMATION
  Report Type: Report from Study
  Country: DE (occurrence: DE)
  Receive Date: 20131225
  Receipt Date: 20140410
  Transmission Date: 20141212
  Serious: Yes (Hospitalization, Other)
  Sender: FDA-Public Use
  Company Number: DE-ROCHE-1319134

PATIENT
  Age: 65 Year
  Sex: Female
  Weight: 91.7 kg

DRUGS (12)
  1. PERTUZUMAB [Suspect]
     Indication: BREAST CANCER
     Dosage: DATE OF LAST DOSE PRIOR TO SAE 25/MAR/2014.
     Route: 042
     Dates: start: 20130924
  2. TRASTUZUMAB [Suspect]
     Indication: BREAST CANCER
     Dosage: DATE OF LOST DOSE PRIOR TO SAE 25/MAR/2014 (551 MG)
     Route: 042
     Dates: start: 20130924
  3. PACLITAXEL [Suspect]
     Indication: BREAST CANCER
     Dosage: DOSE: 80 MG/M2, DATE OF LAST DOSE PRIOR TO SAE 03/DEC/2013.
     Route: 042
     Dates: start: 20131105, end: 20131210
  4. EPIRUBICIN [Suspect]
     Indication: BREAST CANCER
     Dosage: DATE OF LOST DOSE PRIOR TO SAE 25/MAR/2014
     Route: 042
     Dates: start: 20140211
  5. CYCLOPHOSPHAMIDE [Suspect]
     Indication: BREAST CANCER
     Dosage: DATE OF LOST DOSE PRIOR TO SAE 25/MAR/2014
     Route: 042
     Dates: start: 20140211
  6. DULOXETINE [Concomitant]
     Route: 065
  7. FUROSEMIDE [Concomitant]
     Route: 065
  8. METFORMIN [Concomitant]
     Route: 065
  9. METFORMIN [Concomitant]
     Dosage: HALF HALF TABLET TWO TIMES IN A DAY
     Route: 065
  10. TORASEMIDE [Concomitant]
     Route: 065
  11. CYMBALTA [Concomitant]
     Route: 065
  12. EUTHYROX [Concomitant]
     Route: 065

REACTIONS (2)
  - Hypertensive crisis [Unknown]
  - Nausea [Not Recovered/Not Resolved]
